FAERS Safety Report 23051877 (Version 1)
Quarter: 2023Q4

REPORT INFORMATION
  Report Type: Spontaneous
  Country: US (occurrence: None)
  Receive Date: 20231010
  Receipt Date: 20231010
  Transmission Date: 20240110
  Serious: Yes (Death)
  Sender: FDA-Public Use
  Company Number: None

PATIENT
  Age: 89 Year
  Sex: Female
  Weight: 61.23 kg

DRUGS (4)
  1. ELIQUIS [Suspect]
     Active Substance: APIXABAN
     Indication: Transient ischaemic attack
     Dates: start: 2023, end: 20231002
  2. MINERALS\VITAMINS [Concomitant]
     Active Substance: MINERALS\VITAMINS
  3. WOMENS 50+ [Concomitant]
  4. D-MANNOBE [Concomitant]

REACTIONS (2)
  - Transient ischaemic attack [None]
  - Haemorrhage [None]

NARRATIVE: CASE EVENT DATE: 20230930
